FAERS Safety Report 7722361-8 (Version None)
Quarter: 2011Q3

REPORT INFORMATION
  Report Type: 
  Country: None (occurrence: None)
  Receive Date: 20110831
  Receipt Date: 20110826
  Transmission Date: 20111222
  Serious: Yes (Other)
  Sender: FDA-Public Use
  Company Number: FR-PFIZER INC-2011199126

PATIENT
  Age: 66 Year
  Sex: Male

DRUGS (8)
  1. VANCOMYCIN HCL [Suspect]
     Dosage: 750 MG, 1X/DAY
     Route: 042
     Dates: start: 20101031, end: 20101101
  2. INSPRA [Suspect]
     Dosage: 25 MG, 1X/DAY
     Route: 048
     Dates: end: 20101111
  3. MICARDIS [Suspect]
     Dosage: 80 MG, 1X/DAY
     Route: 048
     Dates: end: 20101105
  4. FUROSEMIDE [Concomitant]
     Dosage: 40 MG, 1X/DAY
     Route: 048
     Dates: end: 20101105
  5. DIGOXIN [Concomitant]
     Dosage: 0.25 MG, UNK
     Dates: end: 20101105
  6. BISOPROLOL FUMARATE [Concomitant]
     Dosage: 0.25 MG, 1X/DAY
     Route: 048
     Dates: end: 20101105
  7. GENTAMICIN [Suspect]
     Dosage: 450 MG, 1X/DAY
     Route: 042
     Dates: start: 20101031, end: 20101104
  8. ALLOPURINOL [Suspect]
     Indication: GOUT
     Dosage: 200 MCI, 1X/DAY
     Route: 048
     Dates: start: 20100731, end: 20101030

REACTIONS (4)
  - MYALGIA [None]
  - LEUKOCYTURIA [None]
  - TUBERCULOSIS [None]
  - RENAL FAILURE ACUTE [None]
